FAERS Safety Report 12573265 (Version 2)
Quarter: 2016Q3

REPORT INFORMATION
  Report Type: Spontaneous
  Country: IT (occurrence: IT)
  Receive Date: 20160720
  Receipt Date: 20160802
  Transmission Date: 20161109
  Serious: Yes (Hospitalization)
  Sender: FDA-Public Use
  Company Number: IT-TEVA-677815ACC

PATIENT
  Age: 60 Year
  Sex: Male

DRUGS (4)
  1. CYCLOSPORINE. [Suspect]
     Active Substance: CYCLOSPORINE
     Indication: IMMUNOSUPPRESSION
  2. COLISTIN [Suspect]
     Active Substance: COLISTIN
     Route: 042
  3. PREDNISONE. [Suspect]
     Active Substance: PREDNISONE
     Indication: IMMUNOSUPPRESSION
  4. MYCOPHENOLIC ACID. [Suspect]
     Active Substance: MYCOPHENOLIC ACID
     Indication: IMMUNOSUPPRESSION

REACTIONS (5)
  - Acinetobacter infection [Recovering/Resolving]
  - Thrombotic thrombocytopenic purpura [Recovering/Resolving]
  - Disseminated intravascular coagulation [Recovering/Resolving]
  - Acute kidney injury [Recovering/Resolving]
  - Sepsis syndrome [Recovering/Resolving]
